FAERS Safety Report 11110674 (Version 1)
Quarter: 2015Q2

REPORT INFORMATION
  Report Type: Spontaneous
  Country: US (occurrence: US)
  Receive Date: 20150513
  Receipt Date: 20150513
  Transmission Date: 20150821
  Serious: No
  Sender: FDA-Public Use
  Company Number: US-GLAXOSMITHKLINE-US2015063398

PATIENT
  Sex: Female

DRUGS (4)
  1. VENTOLIN [Concomitant]
     Active Substance: ALBUTEROL SULFATE
  2. SEREVENT DISKUS [Suspect]
     Active Substance: SALMETEROL XINAFOATE
     Indication: EMPHYSEMA
     Route: 055
  3. BREO ELLIPTA [Suspect]
     Active Substance: FLUTICASONE FUROATE\VILANTEROL TRIFENATATE
     Indication: EMPHYSEMA
     Dosage: UNK
  4. OXYGEN. [Concomitant]
     Active Substance: OXYGEN

REACTIONS (2)
  - Cough [Recovering/Resolving]
  - Therapeutic response unexpected [Recovering/Resolving]
